FAERS Safety Report 10221179 (Version 3)
Quarter: 2014Q2

REPORT INFORMATION
  Report Type: Spontaneous
  Country: BR (occurrence: BR)
  Receive Date: 20140606
  Receipt Date: 20140619
  Transmission Date: 20141212
  Serious: Yes (Other)
  Sender: FDA-Public Use
  Company Number: BR-SA-2014SA055967

PATIENT
  Age: 36 Year
  Sex: Female
  Weight: 96 kg

DRUGS (2)
  1. CLEXANE [Suspect]
     Indication: HYPERCOAGULATION
     Route: 058
     Dates: start: 20140405
  2. SYNTHROID [Concomitant]
     Indication: HYPOTHYROIDISM
     Route: 048

REACTIONS (3)
  - Abortion [Unknown]
  - Injection site haematoma [Recovering/Resolving]
  - Exposure during pregnancy [Unknown]
